FAERS Safety Report 9298175 (Version 1)
Quarter: 2012Q4

REPORT INFORMATION
  Report Type: Spontaneous
  Country: US (occurrence: None)
  Receive Date: 20121009
  Receipt Date: 20121009
  Transmission Date: 20130627
  Serious: Yes (Hospitalization)
  Sender: FDA-Public Use
  Company Number: 2515444201200001-001

PATIENT
  Age: 31 Year
  Sex: Male

DRUGS (1)
  1. BANANA BOAT ULTRAMIST SPORT PERFORMANCE SPF 50 [Suspect]
     Indication: PROPHYLAXIS AGAINST SOLAR RADIATION
     Route: 061
     Dates: start: 20120522

REACTIONS (4)
  - Burns second degree [None]
  - Pyrexia [None]
  - Cellulitis [None]
  - Burns first degree [None]
